FAERS Safety Report 19718801 (Version 1)
Quarter: 2021Q3

REPORT INFORMATION
  Report Type: Spontaneous
  Country: US (occurrence: US)
  Receive Date: 20210818
  Receipt Date: 20210818
  Transmission Date: 20211014
  Serious: Yes (Life-Threatening, Hospitalization, Disabling)
  Sender: FDA-Public Use
  Company Number: US-ROCHE-2890322

PATIENT
  Age: 63 Year
  Sex: Female
  Weight: 69 kg

DRUGS (1)
  1. OCREVUS [Suspect]
     Active Substance: OCRELIZUMAB
     Indication: MULTIPLE SCLEROSIS
     Route: 065

REACTIONS (2)
  - Breast cancer [Unknown]
  - Lobular breast carcinoma in situ [Unknown]

NARRATIVE: CASE EVENT DATE: 20200710
